FAERS Safety Report 6100431-8 (Version None)
Quarter: 2009Q1

REPORT INFORMATION
  Report Type: 
  Country: None (occurrence: None)
  Receive Date: 20090303
  Receipt Date: 20090302
  Transmission Date: 20090719
  Serious: Yes (Hospitalization)
  Sender: FDA-Public Use
  Company Number: IT-WYE-G03232109

PATIENT
  Sex: Female

DRUGS (6)
  1. TAZOCIN [Suspect]
     Indication: PYREXIA
     Route: 042
     Dates: start: 20090227, end: 20090227
  2. TAZOCIN [Suspect]
     Indication: BRONCHOPNEUMONIA
  3. VALGANCICLOVIR HCL [Concomitant]
  4. CYCLOSPORINE [Concomitant]
  5. KLACID [Concomitant]
  6. BACTRIM [Concomitant]

REACTIONS (3)
  - ANGIOEDEMA [None]
  - ERYTHEMA [None]
  - RESPIRATORY FAILURE [None]
